FAERS Safety Report 6907725-4 (Version None)
Quarter: 2010Q3

REPORT INFORMATION
  Report Type: 
  Country: None (occurrence: None)
  Receive Date: 20100716
  Receipt Date: 20100510
  Transmission Date: 20110219
  Serious: Yes (Other)
  Sender: FDA-Public Use
  Company Number: 2010059123

PATIENT
  Age: 71 Year
  Sex: Female

DRUGS (2)
  1. CELEBREX [Suspect]
  2. ACETYLSALICYLIC ACID (ACETYLSALUCYLIC ACID) [Concomitant]

REACTIONS (1)
  - CEREBROVASCULAR ACCIDENT [None]
